FAERS Safety Report 18159469 (Version 1)
Quarter: 2020Q3

REPORT INFORMATION
  Report Type: Spontaneous
  Country: CA (occurrence: CA)
  Receive Date: 20200817
  Receipt Date: 20200817
  Transmission Date: 20201103
  Serious: Yes (Death)
  Sender: FDA-Public Use
  Company Number: CA-ASTRAZENECA-2020SF04020

PATIENT
  Age: 70 Year
  Sex: Male
  Weight: 69 kg

DRUGS (20)
  1. SODIUM BICARBONATE. [Concomitant]
     Active Substance: SODIUM BICARBONATE
  2. MEROPENEM. [Concomitant]
     Active Substance: MEROPENEM
  3. MIDAZOLAM. [Concomitant]
     Active Substance: MIDAZOLAM
     Route: 042
  4. SALBUTAMOL [Concomitant]
     Active Substance: ALBUTEROL
  5. PROPOFOL. [Concomitant]
     Active Substance: PROPOFOL
  6. HYDROMORPHONE [Concomitant]
     Active Substance: HYDROMORPHONE
  7. LIXIANA [Concomitant]
     Active Substance: EDOXABAN TOSYLATE
  8. MAGNESIUM SULFATE. [Concomitant]
     Active Substance: MAGNESIUM SULFATE
  9. POLYETHYLENE GLYCOL [Concomitant]
     Active Substance: POLYETHYLENE GLYCOLS
  10. POTASSIUM CHLORIDE. [Concomitant]
     Active Substance: POTASSIUM CHLORIDE
  11. MIRTAZAPINE. [Concomitant]
     Active Substance: MIRTAZAPINE
  12. INFLIXIMAB [Concomitant]
     Active Substance: INFLIXIMAB
  13. NOREPINEPHRINE. [Concomitant]
     Active Substance: NOREPINEPHRINE
  14. IPRATROPIUM [Concomitant]
     Active Substance: IPRATROPIUM
  15. IMFINZI [Suspect]
     Active Substance: DURVALUMAB
     Indication: NON-SMALL CELL LUNG CANCER
     Dosage: ONCE
     Route: 042
  16. METHYLPREDNISOLONE NOS [Concomitant]
     Active Substance: METHYLPREDNISOLONE
     Route: 042
  17. PANCRELIPASE. [Concomitant]
     Active Substance: PANCRELIPASE
  18. SODIUM PHOSPHATE [Concomitant]
     Active Substance: SODIUM PHOSPHATE
  19. PIPERACILLIN/TAZOBACTAM [Concomitant]
     Active Substance: PIPERACILLIN SODIUM\TAZOBACTAM SODIUM
  20. PREDNISONE. [Concomitant]
     Active Substance: PREDNISONE

REACTIONS (6)
  - Pneumonitis [Fatal]
  - Dyspnoea [Fatal]
  - Fatigue [Fatal]
  - Respiratory failure [Fatal]
  - Cough [Fatal]
  - Oxygen saturation decreased [Fatal]
